FAERS Safety Report 5295663-5 (Version None)
Quarter: 2007Q2

REPORT INFORMATION
  Report Type: 
  Country: None (occurrence: None)
  Receive Date: 20070410
  Receipt Date: 20070410
  Transmission Date: 20071010
  Serious: Yes (Life-Threatening, Hospitalization)
  Sender: FDA-Public Use
  Company Number: None

PATIENT
  Sex: Female
  Weight: 63.9572 kg

DRUGS (2)
  1. ARANESP [Suspect]
     Indication: DEEP VEIN THROMBOSIS
     Dosage: 200 MCG X 1 SQ
     Route: 058
     Dates: start: 20070312
  2. ARANESP [Suspect]
     Indication: PULMONARY EMBOLISM
     Dosage: 200 MCG X 1 SQ
     Route: 058
     Dates: start: 20070312

REACTIONS (3)
  - DEEP VEIN THROMBOSIS [None]
  - PANIC ATTACK [None]
  - PULMONARY EMBOLISM [None]
